FAERS Safety Report 5002670-6 (Version None)
Quarter: 2006Q2

REPORT INFORMATION
  Report Type: 
  Country: None (occurrence: None)
  Receive Date: 20060510
  Receipt Date: 20060502
  Transmission Date: 20061013
  Serious: Yes (Disabling)
  Sender: FDA-Public Use
  Company Number: S06-CAN-01222-01

PATIENT
  Age: 50 Year
  Sex: Male

DRUGS (2)
  1. TIAZAC [Suspect]
     Indication: ATRIAL FIBRILLATION
     Dosage: 120 M G QD PO
     Route: 048
  2. WARFARIN SODIUM [Concomitant]

REACTIONS (1)
  - NECK PAIN [None]
